FAERS Safety Report 17928475 (Version 1)
Quarter: 2020Q2

REPORT INFORMATION
  Report Type: Spontaneous
  Country: CA (occurrence: CA)
  Receive Date: 20200623
  Receipt Date: 20200623
  Transmission Date: 20200714
  Serious: Yes (Hospitalization)
  Sender: FDA-Public Use
  Company Number: CA-ACCORD-186100

PATIENT
  Age: 70 Year
  Sex: Female

DRUGS (24)
  1. EPIRUBICIN [Suspect]
     Active Substance: EPIRUBICIN
     Indication: HER2 POSITIVE BREAST CANCER
     Route: 042
  2. GRANISETRON HYDROCHLORIDE. [Concomitant]
     Active Substance: GRANISETRON HYDROCHLORIDE
  3. MOXIFLOXACIN/MOXIFLOXACIN HYDROCHLORIDE [Concomitant]
     Active Substance: MOXIFLOXACIN
  4. DOCETAXEL. [Suspect]
     Active Substance: DOCETAXEL
     Indication: HER2 POSITIVE BREAST CANCER
     Route: 042
  5. PERJETA [Suspect]
     Active Substance: PERTUZUMAB
     Indication: HER2 POSITIVE BREAST CANCER
     Dosage: SOLUTION INTRAVENOUS, STRENGTH: 14 ML VIAL- CONCENTRATE SOL
     Route: 042
  6. PERJETA [Suspect]
     Active Substance: PERTUZUMAB
     Indication: HER2 POSITIVE BREAST CANCER
     Dosage: 1 EVERY 3 WEEKS, STRENGTH: 14 ML VIAL -?CONCENTRATE SOL
     Route: 042
  7. TRASTUZUMAB. [Suspect]
     Active Substance: TRASTUZUMAB
     Indication: HER2 POSITIVE BREAST CANCER
     Dosage: 1 EVERY 3 WEEKS
     Route: 042
  8. SODIUM CHLORIDE. [Suspect]
     Active Substance: SODIUM CHLORIDE
     Indication: PRODUCT USED FOR UNKNOWN INDICATION
     Route: 065
  9. APREPITANT. [Concomitant]
     Active Substance: APREPITANT
  10. STEMETIL [Concomitant]
     Active Substance: PROCHLORPERAZINE
  11. ZINCOFAX [Concomitant]
     Active Substance: ZINC OXIDE
     Route: 061
  12. ATIVAN [Concomitant]
     Active Substance: LORAZEPAM
     Indication: PRODUCT USED FOR UNKNOWN INDICATION
  13. FLUOROURACIL. [Suspect]
     Active Substance: FLUOROURACIL
     Indication: HER2 POSITIVE BREAST CANCER
     Route: 065
  14. COLACE [Concomitant]
     Active Substance: DOCUSATE SODIUM
     Indication: PRODUCT USED FOR UNKNOWN INDICATION
  15. IMOVANE [Concomitant]
     Active Substance: ZOPICLONE
     Route: 065
  16. SALMO SALAR OIL [Concomitant]
     Active Substance: ATLANTIC SALMON OIL
  17. SYNTHROID [Concomitant]
     Active Substance: LEVOTHYROXINE SODIUM
  18. TYLENOL [Concomitant]
     Active Substance: ACETAMINOPHEN
  19. DOCETAXEL. [Suspect]
     Active Substance: DOCETAXEL
     Indication: HER2 POSITIVE BREAST CANCER
     Dosage: SOLUTION INTRAVENOUS
     Route: 042
  20. CANESTEN [Concomitant]
     Active Substance: CLOTRIMAZOLE
     Indication: PRODUCT USED FOR UNKNOWN INDICATION
  21. DILAUDID [Concomitant]
     Active Substance: HYDROMORPHONE HYDROCHLORIDE
     Indication: PRODUCT USED FOR UNKNOWN INDICATION
  22. NAPROXEN. [Concomitant]
     Active Substance: NAPROXEN
  23. PROCYTOX [Suspect]
     Active Substance: CYCLOPHOSPHAMIDE
     Indication: HER2 POSITIVE BREAST CANCER
     Route: 065
  24. DECADRON [Concomitant]
     Active Substance: DEXAMETHASONE
     Indication: PRODUCT USED FOR UNKNOWN INDICATION
     Route: 065

REACTIONS (1)
  - Febrile neutropenia [Recovered/Resolved]
